FAERS Safety Report 8875659 (Version 1)
Quarter: 2012Q4

REPORT INFORMATION
  Report Type: 
  Country: US (occurrence: US)
  Receive Date: 20121030
  Receipt Date: 20121030
  Transmission Date: 20130627
  Serious: Yes (Other)
  Sender: FDA-Public Use
  Company Number: CHPA2012US022354

PATIENT
  Age: 84 Year
  Sex: Female

DRUGS (1)
  1. BENEFIBER W/ WHEAT DEXTRIN [Suspect]
     Indication: NUTRITIONAL SUPPORT
     Dosage: 6 TSP, Unk
     Route: 048
     Dates: start: 2010

REACTIONS (7)
  - Aortic aneurysm [Recovered/Resolved]
  - Cataract [Not Recovered/Not Resolved]
  - Upper limb fracture [Recovered/Resolved]
  - Fall [Unknown]
  - Musculoskeletal pain [Not Recovered/Not Resolved]
  - Activities of daily living impaired [Unknown]
  - Incorrect dose administered [Unknown]
